FAERS Safety Report 9485785 (Version 2)
Quarter: 2013Q3

REPORT INFORMATION
  Report Type: Spontaneous
  Country: US (occurrence: US)
  Receive Date: 20130829
  Receipt Date: 20130919
  Transmission Date: 20140515
  Serious: Yes (Other)
  Sender: FDA-Public Use
  Company Number: US-TEVA-428831USA

PATIENT
  Age: 48 Year
  Sex: Female

DRUGS (2)
  1. PARAGARD 380A [Suspect]
     Indication: CONTRACEPTION
     Route: 015
     Dates: start: 20130715, end: 20130826
  2. LEVOTHYROXINE [Concomitant]
     Indication: HYPOTHYROIDISM

REACTIONS (4)
  - Device dislocation [Recovered/Resolved]
  - Vaginal discharge [Unknown]
  - Metrorrhagia [Unknown]
  - Metrorrhagia [Unknown]
